FAERS Safety Report 8333620-2 (Version None)
Quarter: 2012Q2

REPORT INFORMATION
  Report Type: 
  Country: None (occurrence: None)
  Receive Date: 20120503
  Receipt Date: 20110413
  Transmission Date: 20120825
  Serious: No
  Sender: FDA-Public Use
  Company Number: US-TEVA-2010006557

PATIENT
  Sex: Female

DRUGS (18)
  1. OMEPRAZOLE [Concomitant]
     Indication: NAUSEA
     Dates: start: 20100503, end: 20110401
  2. ALLEGRA [Concomitant]
     Indication: URTICARIA
  3. LAMICTAL [Concomitant]
  4. TRAMADOL HCL [Concomitant]
     Indication: PAIN
  5. LYRICA [Concomitant]
     Indication: FIBROMYALGIA
  6. DEPAKOTE [Concomitant]
  7. SINGULAIR [Concomitant]
     Indication: ASTHMA
  8. XOPENEX [Concomitant]
     Indication: ASTHMA
  9. ADVAIR DISKUS 100/50 [Concomitant]
     Indication: ASTHMA
     Dates: start: 20100101
  10. DOXYCYCLINE [Concomitant]
  11. NUVIGIL [Suspect]
     Indication: NARCOLEPSY
     Dosage: 250 MILLIGRAM;
     Route: 048
     Dates: start: 20110318
  12. AMLODIPINE [Concomitant]
     Dates: start: 20110201
  13. LIDODERM [Concomitant]
     Indication: PAIN
  14. ZOLOFT [Concomitant]
     Indication: SELECTIVE IGA IMMUNODEFICIENCY
  15. HYDROCHLOROTHIAZIDE [Concomitant]
     Dates: start: 20100101
  16. LEVOTHYROXINE SODIUM [Concomitant]
     Indication: HYPOTHYROIDISM
  17. PROCHLORPERNINE MALEATE [Concomitant]
     Indication: NAUSEA
  18. TRAZODONE HCL [Concomitant]
     Dates: start: 20110201

REACTIONS (3)
  - RETCHING [None]
  - PRODUCT TASTE ABNORMAL [None]
  - NAUSEA [None]
